FAERS Safety Report 7083359-9 (Version None)
Quarter: 2010Q4

REPORT INFORMATION
  Report Type: 
  Country: None (occurrence: None)
  Receive Date: 20101104
  Receipt Date: 20101102
  Transmission Date: 20110411
  Serious: No
  Sender: FDA-Public Use
  Company Number: US-ROXANE LABORATORIES, INC.-2010-RO-01340RO

PATIENT
  Sex: Female
  Weight: 54 kg

DRUGS (8)
  1. METHADONE [Suspect]
     Indication: FIBROMYALGIA
     Dosage: 20 MG
     Route: 048
     Dates: start: 19990101
  2. METHADONE [Suspect]
     Dosage: 2.5 MG
     Route: 048
     Dates: start: 20100901
  3. METHADONE [Suspect]
     Dosage: 10 MG
     Route: 048
     Dates: start: 20100901, end: 20101022
  4. TRAZODONE [Concomitant]
     Indication: ANXIETY
     Dosage: 200 MG
     Route: 048
     Dates: start: 19990101
  5. TRAZODONE [Concomitant]
     Indication: SLEEP DISORDER
  6. PAROXETINE HCL [Concomitant]
     Indication: VICTIM OF SPOUSAL ABUSE
     Dosage: 40 MG
  7. XANAX [Concomitant]
     Indication: VICTIM OF SPOUSAL ABUSE
     Dosage: 0.5 MG
  8. OXYCODONE HCL AND ACETAMINOPHEN [Concomitant]
     Indication: PAIN

REACTIONS (4)
  - DRY MOUTH [None]
  - INSOMNIA [None]
  - PERSONALITY CHANGE [None]
  - TOOTH DISORDER [None]
